FAERS Safety Report 9467937 (Version 3)
Quarter: 2014Q1

REPORT INFORMATION
  Report Type: Spontaneous
  Country: IT (occurrence: IE)
  Receive Date: 20130821
  Receipt Date: 20140212
  Transmission Date: 20141002
  Serious: Yes (Other)
  Sender: FDA-Public Use
  Company Number: IE-FRI-1000047951

PATIENT
  Age: 51 Year
  Sex: Male

DRUGS (3)
  1. NEBIVOLOL [Suspect]
     Indication: HYPERTENSION
     Dosage: 5 MG
     Dates: start: 201210
  2. OMESAR [Suspect]
     Indication: HYPERTENSION
     Dosage: 10 MG
     Dates: start: 201207
  3. PANTOPRAZOLE [Concomitant]

REACTIONS (1)
  - Pseudolymphoma [Recovering/Resolving]
